FAERS Safety Report 4289510-8 (Version None)
Quarter: 2004Q1

REPORT INFORMATION
  Report Type: 
  Country: None (occurrence: None)
  Receive Date: 20040113
  Receipt Date: 20030203
  Transmission Date: 20041129
  Serious: Yes (Hospitalization)
  Sender: FDA-Public Use
  Company Number: 2003004983

PATIENT
  Age: 41 Year
  Sex: Male

DRUGS (6)
  1. DIFLUCAN [Suspect]
     Indication: ILL-DEFINED DISORDER
  2. LAMIVUDINE (LAMIVUDINE) [Suspect]
     Indication: ACQUIRED IMMUNODEFICIENCY SYNDROME
  3. TENOFOVIR (TENOFOVIR) [Suspect]
     Indication: HIV INFECTION
     Dosage: ORAL
     Route: 048
  4. BACTRIM [Suspect]
     Indication: ILL-DEFINED DISORDER
  5. VALGANCICLOVIR HYDROCHLORIDE (VALGANCICLOVIR HYDROCHLORIDE) [Suspect]
     Indication: ILL-DEFINED DISORDER
  6. ALL OTHER THERAPEUTIC PRODUCTS [Suspect]
     Indication: ILL-DEFINED DISORDER

REACTIONS (1)
  - DIARRHOEA [None]
